FAERS Safety Report 8776076 (Version 3)
Quarter: 2012Q4

REPORT INFORMATION
  Report Type: 
  Country: US (occurrence: US)
  Receive Date: 20120910
  Receipt Date: 20120917
  Transmission Date: 20130627
  Serious: Yes (Other)
  Sender: FDA-Public Use
  Company Number: US-PFIZER INC-2012221296

PATIENT
  Age: 47 Year
  Sex: Female
  Weight: 61 kg

DRUGS (4)
  1. LYRICA [Suspect]
     Indication: FIBROMYALGIA
     Dosage: 225 mg, 2x/day
     Route: 048
     Dates: start: 201204, end: 2012
  2. PRILOSEC [Concomitant]
     Dosage: UNK
     Route: 048
  3. HYDROCHLOROTHIAZIDE [Concomitant]
     Indication: HYPERTENSION
     Dosage: UNK
     Route: 048
  4. METHYLPHENIDATE [Concomitant]
     Indication: PSYCHOMOTOR HYPERACTIVITY
     Dosage: UNK
     Route: 048

REACTIONS (3)
  - Fibromyalgia [Unknown]
  - Malaise [Unknown]
  - Paraesthesia [Unknown]
